FAERS Safety Report 5383154-2 (Version None)
Quarter: 2007Q3

REPORT INFORMATION
  Report Type: 
  Country: None (occurrence: None)
  Receive Date: 20070710
  Receipt Date: 20070628
  Transmission Date: 20080115
  Serious: Yes (Other)
  Sender: FDA-Public Use
  Company Number: JP-ASTRAZENECA-2005AP06285

PATIENT
  Age: 17633 Day
  Sex: Male
  Weight: 69 kg

DRUGS (5)
  1. NAROPIN [Suspect]
     Indication: LOCAL ANAESTHESIA
     Route: 053
     Dates: start: 20051129, end: 20051129
  2. NAROPIN [Suspect]
     Indication: NERVE BLOCK
     Route: 053
     Dates: start: 20051129, end: 20051129
  3. CARBOCAIN [Concomitant]
     Indication: INFILTRATION ANAESTHESIA
     Route: 050
     Dates: start: 20051129, end: 20051129
  4. FENTANEST [Concomitant]
     Route: 042
     Dates: start: 20051129, end: 20051129
  5. VEEN-F [Concomitant]
     Indication: FLUID REPLACEMENT
     Route: 042
     Dates: start: 20051129, end: 20051129

REACTIONS (4)
  - CLONIC CONVULSION [None]
  - ELECTROCARDIOGRAM QRS COMPLEX PROLONGED [None]
  - ELECTROCARDIOGRAM T WAVE AMPLITUDE INCREASED [None]
  - SINUS TACHYCARDIA [None]
